FAERS Safety Report 13905302 (Version 4)
Quarter: 2017Q4

REPORT INFORMATION
  Report Type: Report from Study
  Country: CO (occurrence: CO)
  Receive Date: 20170825
  Receipt Date: 20171023
  Transmission Date: 20180320
  Serious: Yes (Death, Hospitalization)
  Sender: FDA-Public Use
  Company Number: PHHY2017CO124436

PATIENT
  Age: 82 Year
  Sex: Male
  Weight: 60 kg

DRUGS (1)
  1. ENTRESTO [Suspect]
     Active Substance: SACUBITRIL\VALSARTAN
     Indication: CARDIAC FAILURE
     Dosage: 50 MG, QD
     Route: 048
     Dates: start: 20170526

REACTIONS (6)
  - Cardio-respiratory arrest [Fatal]
  - Urinary tract infection [Unknown]
  - Inappropriate schedule of drug administration [Unknown]
  - Cardiac failure [Unknown]
  - Underdose [Unknown]
  - Choking [Unknown]

NARRATIVE: CASE EVENT DATE: 20170824
